FAERS Safety Report 24416502 (Version 1)
Quarter: 2024Q4

REPORT INFORMATION
  Report Type: Spontaneous
  Country: US (occurrence: None)
  Receive Date: 20241008
  Receipt Date: 20241008
  Transmission Date: 20250115
  Serious: Yes (Disabling)
  Sender: Public
  Company Number: None

PATIENT
  Age: 66 Year
  Sex: Female
  Weight: 95.85 kg

DRUGS (8)
  1. OZEMPIC [Suspect]
     Active Substance: SEMAGLUTIDE
     Indication: Diabetes mellitus
     Dates: start: 20240128, end: 20241006
  2. HUMALOG [Concomitant]
  3. Basagla [Concomitant]
  4. METOPROLOL [Concomitant]
  5. CYMBALTA [Concomitant]
  6. Vitamin D [Concomitant]
  7. COLLAGEN [Concomitant]
  8. VITAMINS [Concomitant]
     Active Substance: VITAMINS

REACTIONS (5)
  - Constipation [None]
  - Faecaloma [None]
  - Alopecia [None]
  - Cataract [None]
  - Pain in extremity [None]

NARRATIVE: CASE EVENT DATE: 20240201
